FAERS Safety Report 15769325 (Version 1)
Quarter: 2018Q4

REPORT INFORMATION
  Report Type: Report from Study
  Country: US (occurrence: US)
  Receive Date: 20181228
  Receipt Date: 20181228
  Transmission Date: 20190205
  Serious: Yes (Other)
  Sender: FDA-Public Use
  Company Number: US-AMGEN-USASL2018184498

PATIENT
  Age: 56 Year
  Sex: Female

DRUGS (1)
  1. REPATHA [Suspect]
     Active Substance: EVOLOCUMAB
     Indication: HYPERLIPIDAEMIA
     Dosage: 140 MG, Q2WK
     Route: 065
     Dates: start: 201812

REACTIONS (6)
  - Dyspnoea [Unknown]
  - Muscle spasms [Unknown]
  - Syncope [Unknown]
  - Asthenia [Not Recovered/Not Resolved]
  - Hypoaesthesia [Unknown]
  - Dizziness [Unknown]

NARRATIVE: CASE EVENT DATE: 201812
